FAERS Safety Report 10472340 (Version 6)
Quarter: 2016Q1

REPORT INFORMATION
  Report Type: Spontaneous
  Country: MX (occurrence: MX)
  Receive Date: 20140924
  Receipt Date: 20160318
  Transmission Date: 20160525
  Serious: Yes (Disabling, Other)
  Sender: FDA-Public Use
  Company Number: MX-ROCHE-1429303

PATIENT
  Age: 62 Year
  Sex: Female
  Weight: 62 kg

DRUGS (9)
  1. ERIVEDGE [Suspect]
     Active Substance: VISMODEGIB
     Indication: BASAL CELL CARCINOMA
     Dosage: STOPPED IN DEC/2014 WITH ERIVEDGE BY LACK OF AVAILABILITY (8 VIALS USED). RESTARTED IN 09/JAN/2015 (
     Route: 048
     Dates: start: 20140423, end: 201412
  2. SILVER SULFADIAZINE. [Concomitant]
     Active Substance: SILVER SULFADIAZINE
     Indication: BASAL CELL CARCINOMA
     Dosage: FOR EAR AREA
     Route: 061
  3. CARBOXYMETHYLCELLULOSE [Concomitant]
     Active Substance: CARBOXYMETHYLCELLULOSE
     Route: 047
  4. RETINOIC ACID [Concomitant]
     Active Substance: TRETINOIN
     Indication: BASAL CELL CARCINOMA
     Dosage: FOR FACE AT NIGHT
     Route: 061
  5. ENSURE [Concomitant]
     Active Substance: AMINO ACIDS\DEXTROSE\ELECTROLYTES NOS\SOYBEAN OIL\VITAMINS
     Indication: NUTRITIONAL SUPPLEMENTATION
     Dosage: ONE BOTTLE EVERY DAY. AS REQUIRED
     Route: 048
  6. CIPROFLOXACIN. [Concomitant]
     Active Substance: CIPROFLOXACIN
     Indication: PRODUCT USED FOR UNKNOWN INDICATION
     Route: 050
     Dates: start: 201409
  7. ERIVEDGE [Suspect]
     Active Substance: VISMODEGIB
     Route: 048
     Dates: start: 20150109, end: 201503
  8. ERIVEDGE [Suspect]
     Active Substance: VISMODEGIB
     Route: 048
     Dates: start: 201505, end: 20150720
  9. TRANSFER FACTOR [Concomitant]
     Indication: BASAL CELL CARCINOMA
     Route: 048
     Dates: start: 2013

REACTIONS (39)
  - Burning sensation [Not Recovered/Not Resolved]
  - Photophobia [Recovering/Resolving]
  - Pain [Recovered/Resolved]
  - Weight decreased [Recovering/Resolving]
  - Blood cholesterol increased [Recovered/Resolved]
  - Decreased appetite [Not Recovered/Not Resolved]
  - Hypoaesthesia [Recovered/Resolved]
  - Hyperglycaemia [Not Recovered/Not Resolved]
  - Eye irritation [Recovering/Resolving]
  - Decreased appetite [Recovered/Resolved]
  - Skin odour abnormal [Recovered/Resolved]
  - Urticaria [Not Recovered/Not Resolved]
  - Nausea [Recovered/Resolved]
  - Pulmonary pain [Recovered/Resolved]
  - Dysgeusia [Recovered/Resolved]
  - Arthralgia [Not Recovered/Not Resolved]
  - Influenza [Recovered/Resolved]
  - Nausea [Not Recovered/Not Resolved]
  - Musculoskeletal stiffness [Recovering/Resolving]
  - Pharyngitis [Recovered/Resolved]
  - Drug dose omission [Unknown]
  - Gait disturbance [Recovered/Resolved]
  - Alopecia [Recovered/Resolved]
  - Muscle spasms [Recovered/Resolved]
  - Musculoskeletal pain [Recovered/Resolved]
  - Fall [Unknown]
  - External ear disorder [Not Recovered/Not Resolved]
  - Lacrimation increased [Not Recovered/Not Resolved]
  - Eye infection [Recovered/Resolved]
  - Eating disorder [Not Recovered/Not Resolved]
  - Tremor [Not Recovered/Not Resolved]
  - Constipation [Recovered/Resolved]
  - Fatigue [Recovered/Resolved]
  - Arthralgia [Recovered/Resolved]
  - Otitis externa [Recovering/Resolving]
  - Balance disorder [Not Recovered/Not Resolved]
  - Headache [Recovered/Resolved]
  - Ageusia [Not Recovered/Not Resolved]
  - Decreased immune responsiveness [Recovered/Resolved]

NARRATIVE: CASE EVENT DATE: 20140423
